FAERS Safety Report 14102097 (Version 1)
Quarter: 2017Q4

REPORT INFORMATION
  Report Type: Spontaneous
  Country: GB (occurrence: GB)
  Receive Date: 20171018
  Receipt Date: 20171018
  Transmission Date: 20180321
  Serious: Yes (Other)
  Sender: FDA-Public Use
  Company Number: GB-TEVA-814234ACC

PATIENT
  Age: 89 Year
  Sex: Female
  Weight: 46 kg

DRUGS (16)
  1. DOXYCYCLINE. [Concomitant]
     Active Substance: DOXYCYCLINE
     Dosage: TWO NOW THEN ONE DAILY.
     Dates: start: 20170907, end: 20170914
  2. FLUCLOXACILLIN [Concomitant]
     Active Substance: FLUCLOXACILLIN
     Dosage: 4 DOSAGE FORMS DAILY;
     Dates: start: 20170802, end: 20170809
  3. SPIRIVA [Concomitant]
     Active Substance: TIOTROPIUM BROMIDE MONOHYDRATE
     Dosage: 1 DOSAGE FORMS DAILY;
     Route: 055
     Dates: start: 20170328
  4. RAMIPRIL. [Concomitant]
     Active Substance: RAMIPRIL
     Dosage: 1 DOSAGE FORMS DAILY;
     Dates: start: 20170605
  5. LIQUIFILM TEARS [Concomitant]
     Active Substance: POLYVINYL ALCOHOL
     Dosage: 1-2 DROPS.
     Dates: start: 20151119
  6. SALBUTAMOL [Concomitant]
     Active Substance: ALBUTEROL
     Dosage: 4 DOSAGE FORMS DAILY;
     Route: 055
     Dates: start: 20151118
  7. ZOPICLONE [Concomitant]
     Active Substance: ZOPICLONE
     Dosage: 1 DOSAGE FORMS DAILY; AT NIGHT.
     Dates: start: 20170511
  8. NUTRITIONAL SUPPLEMENT [Concomitant]
     Active Substance: DIETARY SUPPLEMENT
     Dosage: USE AS DIRECTED.
     Dates: start: 20151208
  9. FOSTAIR [Concomitant]
     Active Substance: BECLOMETHASONE\FORMOTEROL
     Dosage: 4 DOSAGE FORMS DAILY;
     Dates: start: 20170328
  10. QUININE [Concomitant]
     Active Substance: QUININE
     Dosage: 1 DOSAGE FORMS DAILY; AT NIGHT.
     Dates: start: 20170605
  11. AMOXICILLIN. [Suspect]
     Active Substance: AMOXICILLIN
     Route: 065
     Dates: start: 20170927
  12. ASPIRIN. [Concomitant]
     Active Substance: ASPIRIN
     Dosage: 1 DOSAGE FORMS DAILY;
     Dates: start: 20170605
  13. BISOPROLOL [Concomitant]
     Active Substance: BISOPROLOL
     Dosage: 1 DOSAGE FORMS DAILY;
     Dates: start: 20170605
  14. DOUBLEBASE [Concomitant]
     Active Substance: ISOPROPYL MYRISTATE\PARAFFIN
     Dates: start: 20170901, end: 20170902
  15. FUROSEMIDE. [Concomitant]
     Active Substance: FUROSEMIDE
     Dosage: 3 DOSAGE FORMS DAILY; TWO MORNING AND ONE AT LUNCHTIME
     Dates: start: 20170605
  16. LORAZEPAM. [Concomitant]
     Active Substance: LORAZEPAM
     Route: 060
     Dates: start: 20170511

REACTIONS (1)
  - Oral pain [Recovered/Resolved]

NARRATIVE: CASE EVENT DATE: 20170927
